FAERS Safety Report 22064321 (Version 3)
Quarter: 2023Q1

REPORT INFORMATION
  Report Type: Spontaneous
  Country: CH (occurrence: CH)
  Receive Date: 20230306
  Receipt Date: 20230321
  Transmission Date: 20230417
  Serious: Yes (Hospitalization)
  Sender: FDA-Public Use
  Company Number: CH-BAYER-2023A028136

PATIENT
  Age: 52 Year
  Sex: Male

DRUGS (1)
  1. VITRAKVI [Suspect]
     Active Substance: LAROTRECTINIB
     Indication: Malignant glioma
     Dosage: 100 MG, BID
     Dates: start: 20220910, end: 20230127

REACTIONS (1)
  - Malignant glioma [Not Recovered/Not Resolved]

NARRATIVE: CASE EVENT DATE: 20230124
